FAERS Safety Report 12264944 (Version 1)
Quarter: 2016Q2

REPORT INFORMATION
  Report Type: Spontaneous
  Country: US (occurrence: US)
  Receive Date: 20160413
  Receipt Date: 20160413
  Transmission Date: 20160815
  Serious: No
  Sender: FDA-Public Use
  Company Number: US-JNJFOC-20160308241

PATIENT
  Age: 63 Year
  Sex: Male
  Weight: 88.91 kg

DRUGS (4)
  1. TYLENOL EXTRA STRENGTH [Suspect]
     Active Substance: ACETAMINOPHEN
     Indication: NASOPHARYNGITIS
     Dosage: 1 TIME
     Route: 048
     Dates: start: 20160306
  2. BAYER ASPIRIN [Concomitant]
     Active Substance: ASPIRIN
     Indication: CARDIAC DISORDER
     Dosage: DAILY
     Route: 065
  3. TYLENOL EXTRA STRENGTH [Suspect]
     Active Substance: ACETAMINOPHEN
     Indication: SINUS CONGESTION
     Dosage: 1 TIME
     Route: 048
     Dates: start: 20160306
  4. METOPROLOL. [Concomitant]
     Active Substance: METOPROLOL
     Indication: CARDIAC DISORDER
     Dosage: DAILY
     Route: 065

REACTIONS (4)
  - Product use issue [Unknown]
  - Drug ineffective for unapproved indication [Unknown]
  - Product packaging issue [Unknown]
  - Off label use [Unknown]

NARRATIVE: CASE EVENT DATE: 20160306
